FAERS Safety Report 8455048-7 (Version None)
Quarter: 2012Q2

REPORT INFORMATION
  Report Type: 
  Country: None (occurrence: None)
  Receive Date: 20120621
  Receipt Date: 20120618
  Transmission Date: 20120825
  Serious: No
  Sender: FDA-Public Use
  Company Number: US-BAYER-2012-060994

PATIENT
  Age: 36 Year
  Sex: Female

DRUGS (4)
  1. BETASERON [Suspect]
     Dosage: 0.019 MG, QOD
     Route: 058
  2. BETASERON [Suspect]
     Indication: MULTIPLE SCLEROSIS
     Dosage: 0.063 MG, UNK
     Route: 058
     Dates: start: 20120401
  3. BETASERON [Suspect]
     Dosage: 0.25 MG, QOD
     Route: 058
  4. BETASERON [Suspect]
     Dosage: 0.125 MG, QOD
     Route: 058

REACTIONS (2)
  - FEELING HOT [None]
  - DRY MOUTH [None]
